FAERS Safety Report 5480346-9 (Version None)
Quarter: 2007Q4

REPORT INFORMATION
  Report Type: 
  Country: None (occurrence: None)
  Receive Date: 20071009
  Receipt Date: 20070928
  Transmission Date: 20080405
  Serious: Yes (Other)
  Sender: FDA-Public Use
  Company Number: NZ-ROCHE-434407

PATIENT
  Age: 57 Year
  Sex: Male

DRUGS (12)
  1. CELLCEPT [Suspect]
     Indication: PROPHYLAXIS AGAINST TRANSPLANT REJECTION
     Route: 048
     Dates: start: 20051023, end: 20060202
  2. CELLCEPT [Suspect]
     Route: 048
     Dates: start: 20060202, end: 20060216
  3. CELLCEPT [Suspect]
     Route: 048
  4. ALLOPURINOL [Concomitant]
  5. PREDNISONE [Concomitant]
  6. DILTIAZEM [Concomitant]
  7. CILAZAPRIL [Concomitant]
  8. CYCLOSPORINE [Concomitant]
  9. CYCLOSPORINE [Concomitant]
     Dosage: DOSE REDUCED.
  10. CARTIA XT [Concomitant]
  11. RANITIDINE HCL [Concomitant]
  12. RAPAMYCIN [Concomitant]

REACTIONS (6)
  - ALOPECIA [None]
  - CANDIDIASIS [None]
  - ERECTILE DYSFUNCTION [None]
  - HYPOAESTHESIA [None]
  - MYALGIA [None]
  - RASH [None]
